FAERS Safety Report 23135012 (Version 4)
Quarter: 2023Q4

REPORT INFORMATION
  Report Type: Spontaneous
  Country: US (occurrence: US)
  Receive Date: 20231101
  Receipt Date: 20231124
  Transmission Date: 20240110
  Serious: No
  Sender: FDA-Public Use
  Company Number: US-OPELLA-2023OHG010538

PATIENT
  Sex: Male

DRUGS (3)
  1. ICY HOT WITH LIDOCAINE NO-MESS [Suspect]
     Active Substance: LIDOCAINE\MENTHOL
     Indication: Product used for unknown indication
     Dosage: 9,79 G; 14,24 G/89 M?PACKAGE SIZE:BOT X 1 + APPLICATOR
     Route: 065
  2. ICY HOT WITH LIDOCAINE NO-MESS [Suspect]
     Active Substance: LIDOCAINE\MENTHOL
     Dosage: 9,79 G; 14,24 G/89 M?PACKAGE SIZE:BOT X 1 + APPLICATOR
     Route: 065
  3. ICY HOT WITH LIDOCAINE NO-MESS [Suspect]
     Active Substance: LIDOCAINE\MENTHOL
     Dosage: DOSAGE STRENGTH: 2.96 G; 0.74 G/74 ML
     Route: 065

REACTIONS (2)
  - Drug ineffective [Unknown]
  - No adverse event [Unknown]
